FAERS Safety Report 8393050-4 (Version None)
Quarter: 2012Q1

REPORT INFORMATION
  Report Type: 
  Country: None (occurrence: None)
  Receive Date: 20120323
  Receipt Date: 20110301
  Transmission Date: 20120608
  Serious: Yes (Hospitalization)
  Sender: FDA-Public Use
  Company Number: 163-21880-11030444

PATIENT
  Age: 53 Year
  Sex: Female

DRUGS (2)
  1. REVLIMID [Suspect]
     Indication: MULTIPLE MYELOMA
     Dosage: 15MG X 20 DAYS THEN 5MG X 8 DAYS, DAILY
     Dates: start: 20080104
  2. REVLIMID [Suspect]
     Indication: MULTIPLE MYELOMA
     Dosage: 15MG X 20 DAYS THEN 15MG X 8 DAYS, DAILY, PO
     Route: 048
     Dates: start: 20110228

REACTIONS (1)
  - PNEUMONIA [None]
